FAERS Safety Report 17393716 (Version 1)
Quarter: 2020Q1

REPORT INFORMATION
  Report Type: Spontaneous
  Country: US (occurrence: US)
  Receive Date: 20200209
  Receipt Date: 20200209
  Transmission Date: 20200409
  Serious: Yes (Hospitalization)
  Sender: FDA-Public Use
  Company Number: US-BEH-2020112568

PATIENT
  Age: 67 Year
  Sex: Female

DRUGS (1)
  1. PRIVIGEN [Suspect]
     Active Substance: HUMAN IMMUNOGLOBULIN G
     Indication: MYASTHENIA GRAVIS
     Dosage: 80 GRAM, QMT
     Route: 042
     Dates: start: 20191110

REACTIONS (1)
  - Thyroidectomy [Unknown]

NARRATIVE: CASE EVENT DATE: 20200122
